FAERS Safety Report 21758510 (Version 1)
Quarter: 2022Q4

REPORT INFORMATION
  Report Type: Spontaneous
  Country: US (occurrence: None)
  Receive Date: 20221221
  Receipt Date: 20221221
  Transmission Date: 20230112
  Serious: No
  Sender: FDA-Public Use
  Company Number: US-ROCHE-3099769

PATIENT
  Age: 69 Year
  Sex: Female
  Weight: 51.756 kg

DRUGS (7)
  1. GAZYVA [Suspect]
     Active Substance: OBINUTUZUMAB
     Indication: Chronic lymphocytic leukaemia
     Route: 042
     Dates: start: 20220505
  2. IMIPRAMINE [Concomitant]
     Active Substance: IMIPRAMINE
     Dosage: STARTED BEFORE GAZYVA ;ONGOING: YES
     Route: 048
  3. CEFADROXIL [Concomitant]
     Active Substance: CEFADROXIL
     Route: 048
     Dates: start: 202011
  4. AMLODIPINE [Concomitant]
     Active Substance: AMLODIPINE BESYLATE
     Indication: Raynaud^s phenomenon
     Route: 048
     Dates: start: 202110
  5. IRON [Concomitant]
     Active Substance: IRON
     Indication: Red blood cell count decreased
     Route: 048
     Dates: start: 202110
  6. VITAMIN D3 [Concomitant]
     Active Substance: CHOLECALCIFEROL
     Indication: Osteoporosis
     Route: 048
     Dates: start: 202109
  7. PROBIOTICS NOS [Concomitant]
     Active Substance: PROBIOTICS NOS
     Dosage: 20 BILLION STATED FOR DOSE; STARTED BEFORE GAZYVA ;ONGOING: YES, 20 UNIT NOT REPORTED
     Route: 048

REACTIONS (4)
  - Abdominal pain upper [Recovered/Resolved]
  - Nausea [Recovered/Resolved]
  - Vomiting [Recovered/Resolved]
  - Retching [Unknown]

NARRATIVE: CASE EVENT DATE: 20220511
